FAERS Safety Report 5142477-2 (Version None)
Quarter: 2006Q4

REPORT INFORMATION
  Report Type: 
  Country: None (occurrence: None)
  Receive Date: 20061027
  Receipt Date: 20061023
  Transmission Date: 20070319
  Serious: Yes (Death)
  Sender: FDA-Public Use
  Company Number: 163-21880-06101049

PATIENT
  Age: 81 Year
  Sex: Female

DRUGS (2)
  1. REVLIMID [Suspect]
     Indication: ACUTE MYELOID LEUKAEMIA
     Dosage: 5 MG, DAILY, ORAL, SEE IMAGE
     Route: 048
     Dates: start: 20060701, end: 20060801
  2. REVLIMID [Suspect]
     Indication: ACUTE MYELOID LEUKAEMIA
     Dosage: 5 MG, DAILY, ORAL, SEE IMAGE
     Route: 048
     Dates: start: 20060801, end: 20061001

REACTIONS (1)
  - DEATH [None]
